FAERS Safety Report 19928337 (Version 1)
Quarter: 2021Q4

REPORT INFORMATION
  Report Type: Spontaneous
  Country: US (occurrence: US)
  Receive Date: 20211006
  Receipt Date: 20211006
  Transmission Date: 20220303
  Serious: Yes (Hospitalization)
  Sender: FDA-Public Use
  Company Number: None

PATIENT
  Age: 68 Year
  Sex: Male
  Weight: 72 kg

DRUGS (4)
  1. BRENTUXIMAB VEDOTIN [Suspect]
     Active Substance: BRENTUXIMAB VEDOTIN
     Indication: Hodgkin^s disease
     Dosage: ?          OTHER FREQUENCY:2 CYCLES;
     Route: 042
     Dates: start: 20210201, end: 20210322
  2. DOXORUBICIN [Concomitant]
     Active Substance: DOXORUBICIN
     Dates: start: 20210201
  3. VINBLASTINE [Concomitant]
     Active Substance: VINBLASTINE
     Dates: start: 20210201
  4. DACARBAZINE [Concomitant]
     Active Substance: DACARBAZINE
     Dates: start: 20210201

REACTIONS (1)
  - Posterior reversible encephalopathy syndrome [None]

NARRATIVE: CASE EVENT DATE: 20210412
